FAERS Safety Report 9641736 (Version 4)
Quarter: 2013Q4

REPORT INFORMATION
  Report Type: Report from Study
  Country: CA (occurrence: CA)
  Receive Date: 20131023
  Receipt Date: 20131113
  Transmission Date: 20140711
  Serious: Yes (Hospitalization, Other)
  Sender: FDA-Public Use
  Company Number: CA-BAYER-2013-121217

PATIENT
  Age: 60 Year
  Sex: Female

DRUGS (2)
  1. STIVARGA [Suspect]
     Indication: COLORECTAL CANCER METASTATIC
     Dosage: 120 MG, QD
     Route: 048
     Dates: start: 20130930, end: 2013
  2. STIVARGA [Suspect]
     Indication: COLORECTAL CANCER METASTATIC
     Dosage: 160 MG, QD
     Route: 048
     Dates: start: 20131030

REACTIONS (12)
  - Diarrhoea [None]
  - Decreased appetite [Not Recovered/Not Resolved]
  - Confusional state [None]
  - Dehydration [None]
  - Catheter site pain [Not Recovered/Not Resolved]
  - Oral pain [Not Recovered/Not Resolved]
  - Asthenia [None]
  - Aphagia [None]
  - Nausea [None]
  - Back pain [None]
  - Abdominal pain upper [None]
  - Colorectal cancer metastatic [None]
